FAERS Safety Report 24601639 (Version 2)
Quarter: 2024Q4

REPORT INFORMATION
  Report Type: Spontaneous
  Country: JP (occurrence: JP)
  Receive Date: 20241111
  Receipt Date: 20241201
  Transmission Date: 20250115
  Serious: Yes (Death)
  Sender: GLAXOSMITHKLINE
  Company Number: JP-GSK-JP2024JPN138325

PATIENT

DRUGS (1)
  1. DAPRODUSTAT [Suspect]
     Active Substance: DAPRODUSTAT
     Dosage: UNK

REACTIONS (1)
  - Fall [Fatal]
